FAERS Safety Report 5409070-5 (Version None)
Quarter: 2007Q3

REPORT INFORMATION
  Report Type: 
  Country: None (occurrence: None)
  Receive Date: 20070808
  Receipt Date: 20070801
  Transmission Date: 20080115
  Serious: Yes (Hospitalization)
  Sender: FDA-Public Use
  Company Number: DE-ABBOTT-07P-062-0376514-00

PATIENT
  Age: 49 Year
  Sex: Female

DRUGS (5)
  1. HUMIRA [Suspect]
     Indication: DRUG USE FOR UNKNOWN INDICATION
     Dates: start: 20060201, end: 20060601
  2. METHOTREXATE [Suspect]
     Indication: DRUG USE FOR UNKNOWN INDICATION
     Dates: start: 20060101
  3. METHOTREXATE [Suspect]
     Dates: start: 20060101, end: 20060101
  4. HYDROXYCHLOROQUINE/CHLOROQUINE [Suspect]
     Indication: DRUG USE FOR UNKNOWN INDICATION
  5. ANTIMALARIALS [Concomitant]
     Indication: DRUG USE FOR UNKNOWN INDICATION
     Dates: start: 20070101

REACTIONS (2)
  - DIARRHOEA INFECTIOUS [None]
  - KNEE ARTHROPLASTY [None]
